FAERS Safety Report 25415316 (Version 3)
Quarter: 2025Q3

REPORT INFORMATION
  Report Type: Report from Study
  Country: JP (occurrence: JP)
  Receive Date: 20250610
  Receipt Date: 20250821
  Transmission Date: 20251020
  Serious: Yes (Death, Hospitalization, Other)
  Sender: TAKEDA
  Company Number: JP-TAKEDA-2025TJP005559

PATIENT
  Age: 51 Year
  Sex: Male

DRUGS (1)
  1. FRUQUINTINIB [Suspect]
     Active Substance: FRUQUINTINIB
     Indication: Rectal cancer metastatic
     Dates: start: 20250516, end: 20250530

REACTIONS (2)
  - Death [Fatal]
  - Spontaneous bacterial peritonitis [Recovering/Resolving]

NARRATIVE: CASE EVENT DATE: 20250604
